FAERS Safety Report 24307980 (Version 6)
Quarter: 2024Q4

REPORT INFORMATION
  Report Type: Report from Study
  Country: US (occurrence: US)
  Receive Date: 20240911
  Receipt Date: 20241118
  Transmission Date: 20250114
  Serious: No
  Sender: SUNOVION
  Company Number: US-SUMITOMO PHARMA SWITZERLAND GMBH-2024SPA001514

PATIENT

DRUGS (5)
  1. ORGOVYX [Suspect]
     Active Substance: RELUGOLIX
     Indication: Prostate cancer
     Dosage: 360 MG, SINGLE (ONE TIME DOSE)
     Route: 048
     Dates: start: 20240731, end: 20240731
  2. ORGOVYX [Suspect]
     Active Substance: RELUGOLIX
     Dosage: 120 MG, QD
     Route: 048
     Dates: start: 20240801
  3. NUBEQA [Concomitant]
     Active Substance: DAROLUTAMIDE
     Indication: Prostate cancer
     Dosage: 600 MG, BID
     Route: 065
     Dates: start: 20240924
  4. ROSUVASTATIN [Concomitant]
     Active Substance: ROSUVASTATIN
     Dosage: 10 MG
  5. SOLIFENACIN [Concomitant]
     Active Substance: SOLIFENACIN
     Indication: Prostate cancer
     Dosage: 5 MG
     Route: 065

REACTIONS (11)
  - Nocturia [Unknown]
  - Pyrexia [Unknown]
  - Dysuria [Unknown]
  - Pollakiuria [Unknown]
  - Poor quality sleep [Unknown]
  - Calculus bladder [Unknown]
  - Renal pain [Unknown]
  - Blood cholesterol abnormal [Unknown]
  - Night sweats [Unknown]
  - Hot flush [Not Recovered/Not Resolved]
  - Feeling hot [Unknown]
